FAERS Safety Report 12904625 (Version 1)
Quarter: 2016Q4

REPORT INFORMATION
  Report Type: Spontaneous
  Country: JP (occurrence: JP)
  Receive Date: 20161102
  Receipt Date: 20161102
  Transmission Date: 20170207
  Serious: Yes (Hospitalization, Other)
  Sender: FDA-Public Use
  Company Number: JP-TEVA-2016-JP-002124J

PATIENT
  Age: 70 Year
  Sex: Female

DRUGS (8)
  1. DIFENIDOL HYDROCHLORIDE TABLET 25MG ^TYK^ [Suspect]
     Active Substance: DIPHENIDOL HYDROCHLORIDE
     Indication: DIZZINESS
     Route: 048
     Dates: start: 20160702, end: 20161008
  2. CALONAL [Concomitant]
     Active Substance: ACETAMINOPHEN
     Indication: PAIN
     Route: 065
  3. LIMAPROST ALFADEX [Concomitant]
     Active Substance: LIMAPROST
     Route: 065
  4. ROZEREM [Concomitant]
     Active Substance: RAMELTEON
     Route: 048
  5. LANDSEN [Concomitant]
     Active Substance: CLONAZEPAM
     Route: 048
  6. MAGMITT [Concomitant]
     Active Substance: MAGNESIUM OXIDE
     Route: 048
  7. LYRICA [Concomitant]
     Active Substance: PREGABALIN
     Route: 048
  8. EBRANTIL [Concomitant]
     Active Substance: URAPIDIL
     Route: 048

REACTIONS (5)
  - Dizziness [Recovered/Resolved]
  - Skull fracture [Unknown]
  - Fall [Unknown]
  - Feeling abnormal [Recovered/Resolved]
  - Drug effect incomplete [Unknown]

NARRATIVE: CASE EVENT DATE: 20160829
